FAERS Safety Report 10696027 (Version 2)
Quarter: 2015Q1

REPORT INFORMATION
  Report Type: Spontaneous
  Country: US (occurrence: US)
  Receive Date: 20150107
  Receipt Date: 20150202
  Transmission Date: 20150721
  Serious: Yes (Hospitalization)
  Sender: FDA-Public Use
  Company Number: US-PFIZER INC-2015004365

PATIENT
  Age: 14 Year
  Sex: Male
  Weight: 56.69 kg

DRUGS (9)
  1. TYGACIL [Suspect]
     Active Substance: TIGECYCLINE
     Dosage: 50 MG, ADD SALINE TO THE MIX, EVERY 12 HOURS
     Route: 042
     Dates: start: 20141103, end: 20141204
  2. ZYVOX [Concomitant]
     Active Substance: LINEZOLID
     Dosage: 600MG/300ML, 2X/DAY
     Route: 042
     Dates: start: 20141205
  3. CEFOXITIN [Concomitant]
     Active Substance: CEFOXITIN\CEFOXITIN SODIUM
     Indication: MYCOBACTERIAL INFECTION
     Dosage: 3GM/100ML NS, EVERY 8 HOURS
     Route: 042
     Dates: start: 20141022
  4. CAYSTON [Concomitant]
     Active Substance: AZTREONAM
     Indication: CYSTIC FIBROSIS
     Dosage: UNK, 3X/DAY
     Route: 055
     Dates: start: 20101001
  5. PULMOZYME [Concomitant]
     Active Substance: DORNASE ALFA
     Indication: RESPIRATORY TRACT CONGESTION
     Dosage: 2.5 ML AMPULES, 1X/DAY USUALLY AT NIGHT
     Route: 055
     Dates: start: 20050701
  6. TYGACIL [Suspect]
     Active Substance: TIGECYCLINE
     Indication: MYCOBACTERIAL INFECTION
     Dosage: UNK, 1X/DAY
  7. ZITHROMAX [Concomitant]
     Active Substance: AZITHROMYCIN DIHYDRATE
     Dosage: UNK
     Dates: start: 20141022
  8. AMIKACIN [Concomitant]
     Active Substance: AMIKACIN
     Indication: MYCOBACTERIAL INFECTION
     Dosage: UNK, 2X/DAY
     Route: 055
  9. TYGACIL [Suspect]
     Active Substance: TIGECYCLINE
     Dosage: UNK, 2X/DAY

REACTIONS (5)
  - Decreased appetite [Recovered/Resolved]
  - Diarrhoea [Not Recovered/Not Resolved]
  - Drug intolerance [Unknown]
  - Weight decreased [Recovered/Resolved]
  - Nausea [Recovered/Resolved]

NARRATIVE: CASE EVENT DATE: 20141103
